FAERS Safety Report 4483431-3 (Version None)
Quarter: 2004Q4

REPORT INFORMATION
  Report Type: 
  Country: None (occurrence: None)
  Receive Date: 20041020
  Receipt Date: 20041001
  Transmission Date: 20050328
  Serious: Yes (Death)
  Sender: FDA-Public Use
  Company Number: USA041079929

PATIENT
  Age: 47 Year
  Sex: Female
  Weight: 72 kg

DRUGS (1)
  1. STRATTERA [Suspect]

REACTIONS (4)
  - ABNORMAL BEHAVIOUR [None]
  - CONTUSION [None]
  - EXCORIATION [None]
  - OVERDOSE [None]
